FAERS Safety Report 21963936 (Version 1)
Quarter: 2023Q1

REPORT INFORMATION
  Report Type: Spontaneous
  Country: US (occurrence: US)
  Receive Date: 20230207
  Receipt Date: 20230207
  Transmission Date: 20230417
  Serious: Yes (Death, Hospitalization, Other)
  Sender: FDA-Public Use
  Company Number: US-FreseniusKabi-FK202301394

PATIENT
  Age: 12 Year
  Sex: Male

DRUGS (6)
  1. METHYLPREDNISOLONE [Suspect]
     Active Substance: METHYLPREDNISOLONE
     Indication: Immunosuppression
     Dosage: 15MG/KG
     Route: 042
  2. LAPINE T-LYMPHOCYTE IMMUNE GLOBULIN [Suspect]
     Active Substance: LAPINE T-LYMPHOCYTE IMMUNE GLOBULIN
     Indication: Immunosuppression
     Dosage: 7.5 MG/KG TOTAL OVER 5 DAYS
  3. TACROLIMUS [Suspect]
     Active Substance: TACROLIMUS
     Indication: Immunosuppression
     Dosage: INITIAL GOAL TROUGH 10?12 NG/ML, WEANED TO 6?8 NG/ML BY 6-MONTH POST-TRANSPLANT?5?8 NG/ML
     Route: 048
  4. MYCOPHENOLATE MOFETIL [Suspect]
     Active Substance: MYCOPHENOLATE MOFETIL
     Indication: Immunosuppression
     Dosage: 600MG/M2BID
  5. MYCOPHENOLATE MOFETIL [Suspect]
     Active Substance: MYCOPHENOLATE MOFETIL
     Dosage: BID
  6. PREDNISONE [Suspect]
     Active Substance: PREDNISONE
     Indication: Immunosuppression
     Dosage: WEANED TO 0.24 MG/KG/ DAY BY 6-MONTH POST-TRANSPLANT

REACTIONS (7)
  - Intracranial pressure increased [Unknown]
  - Hydrocephalus [Unknown]
  - Lymphopenia [Unknown]
  - Nocardiosis [Fatal]
  - Superinfection bacterial [Unknown]
  - Rhinovirus infection [Unknown]
  - Enterovirus infection [Unknown]
